FAERS Safety Report 10881851 (Version 1)
Quarter: 2015Q1

REPORT INFORMATION
  Report Type: Spontaneous
  Country: US (occurrence: None)
  Receive Date: 20150227
  Receipt Date: 20150227
  Transmission Date: 20150721
  Serious: Yes (Death, Hospitalization)
  Sender: FDA-Public Use
  Company Number: None

PATIENT
  Age: 59 Year
  Sex: Female
  Weight: 46.3 kg

DRUGS (2)
  1. CARBOPLATIN. [Suspect]
     Active Substance: CARBOPLATIN
     Dates: end: 20150119
  2. TAXOL [Suspect]
     Active Substance: PACLITAXEL
     Dates: end: 20150119

REACTIONS (4)
  - Peripheral swelling [None]
  - Respiratory failure [None]
  - Productive cough [None]
  - Dyspnoea [None]

NARRATIVE: CASE EVENT DATE: 20150222
